FAERS Safety Report 9320426 (Version 3)
Quarter: 2013Q4

REPORT INFORMATION
  Report Type: Spontaneous
  Country: US (occurrence: US)
  Receive Date: 20130530
  Receipt Date: 20131205
  Transmission Date: 20140711
  Serious: Yes (Death, Hospitalization)
  Sender: FDA-Public Use
  Company Number: US-B.I. PHARMACEUTICALS,INC./RIDGEFIELD-2013-BI-14686BP

PATIENT
  Age: 78 Year
  Sex: Female
  Weight: 49.9 kg

DRUGS (13)
  1. PRADAXA [Suspect]
     Indication: ATRIAL FIBRILLATION
     Dosage: 300 MG
     Route: 048
     Dates: start: 20111130, end: 20111202
  2. PRADAXA [Suspect]
     Dosage: 150 MG
     Route: 048
     Dates: end: 20120118
  3. LOVENOX [Suspect]
     Indication: ATRIAL FIBRILLATION
     Route: 058
     Dates: start: 201111, end: 201111
  4. LIPITOR [Concomitant]
     Dosage: 20 MG
     Route: 048
     Dates: start: 2006, end: 2011
  5. LEVOTHYROXINE [Concomitant]
     Indication: HYPOTHYROIDISM
     Dosage: 50 MCG
     Route: 048
     Dates: start: 2006, end: 2011
  6. AMIODARONE [Concomitant]
     Indication: ATRIAL FIBRILLATION
     Dosage: 800 MG
     Route: 048
     Dates: start: 2006, end: 2011
  7. CARVEDILOL [Concomitant]
     Indication: CARDIAC FAILURE CONGESTIVE
     Dosage: 6.25 MG
     Route: 048
  8. CIPRO [Concomitant]
     Indication: URINARY TRACT INFECTION
     Dosage: 1000 MG
     Route: 048
  9. LISINOPRIL [Concomitant]
     Indication: CARDIAC FAILURE CONGESTIVE
     Dosage: 5 MG
     Route: 048
  10. SPIRONOLACTONE [Concomitant]
     Indication: CARDIAC FAILURE CONGESTIVE
     Dosage: 25 MG
     Route: 048
     Dates: start: 2006, end: 2011
  11. METFORMIN [Concomitant]
     Indication: TYPE 2 DIABETES MELLITUS
     Dosage: 1000 MG
     Route: 048
     Dates: start: 2006, end: 2011
  12. POTASSIUM CHLORIDE [Concomitant]
     Dosage: 20 MEQ
     Route: 048
     Dates: start: 2006, end: 2011
  13. LASIX [Concomitant]
     Indication: CARDIAC FAILURE CONGESTIVE

REACTIONS (6)
  - Myocardial infarction [Fatal]
  - Cardiomyopathy [Fatal]
  - Abdominal wall haematoma [Unknown]
  - Renal failure acute [Not Recovered/Not Resolved]
  - Coagulopathy [Unknown]
  - Rectal haemorrhage [Unknown]
